FAERS Safety Report 6123805-8 (Version None)
Quarter: 2009Q1

REPORT INFORMATION
  Report Type: 
  Country: None (occurrence: None)
  Receive Date: 20090317
  Receipt Date: 20090226
  Transmission Date: 20090719
  Serious: Yes (Other)
  Sender: FDA-Public Use
  Company Number: 8043802

PATIENT
  Age: 24 Year
  Sex: Female

DRUGS (7)
  1. PREDNISOLONE [Suspect]
     Indication: CUTANEOUS LUPUS ERYTHEMATOSUS
     Dosage: PO
     Route: 048
  2. ACYCLOVIR [Concomitant]
  3. CHLORAMPHENICOL [Concomitant]
  4. CORTICOSTEROID [Concomitant]
  5. FLUCLOXACILLIN [Concomitant]
  6. FUSIDIC ACID [Concomitant]
  7. HYDROXYCHLOROQUINE [Concomitant]

REACTIONS (2)
  - GINGIVITIS [None]
  - WEIGHT INCREASED [None]
